FAERS Safety Report 5748509-2 (Version None)
Quarter: 2008Q2

REPORT INFORMATION
  Report Type: 
  Country: None (occurrence: None)
  Receive Date: 20080519
  Receipt Date: 20080508
  Transmission Date: 20081010
  Serious: Yes (Other)
  Sender: FDA-Public Use
  Company Number: CERZ-1000145

PATIENT
  Sex: Male

DRUGS (8)
  1. CEREZYME [Suspect]
     Indication: GAUCHER'S DISEASE
     Dosage: 45 U/KG, Q2W, INTRAVENOUS : 60 U/KG, INTRAVENOUS
     Route: 042
     Dates: start: 20021001
  2. CEREZYME [Suspect]
     Indication: GAUCHER'S DISEASE
     Dosage: 45 U/KG, Q2W, INTRAVENOUS : 60 U/KG, INTRAVENOUS
     Route: 042
     Dates: start: 20040101
  3. ALLOPURINOL [Concomitant]
  4. PREDNISONE TAB [Concomitant]
  5. SYNTHROID [Concomitant]
  6. PRILOSEC [Concomitant]
  7. LISINOPIRL (LISINOPRIL) [Concomitant]
  8. ACTOS [Concomitant]

REACTIONS (4)
  - HYPERGAMMAGLOBULINAEMIA [None]
  - LEUKOPENIA [None]
  - LIVER DISORDER [None]
  - NEUTROPENIA [None]
